FAERS Safety Report 15468424 (Version 5)
Quarter: 2018Q4

REPORT INFORMATION
  Report Type: Spontaneous
  Country: CA (occurrence: CA)
  Receive Date: 20181005
  Receipt Date: 20181228
  Transmission Date: 20190204
  Serious: Yes (Other)
  Sender: FDA-Public Use
  Company Number: CA-CELLTRION INC.-2017CA008725

PATIENT

DRUGS (10)
  1. INFLECTRA [Suspect]
     Active Substance: INFLIXIMAB-DYYB
     Dosage: 500 MG, CYCLIC (EVERY 7 WEEKS)
     Route: 042
     Dates: start: 20170110
  2. INFLECTRA [Suspect]
     Active Substance: INFLIXIMAB-DYYB
     Dosage: 500 MG CYCLIC (EVERY 7 WEEKS)
     Route: 042
     Dates: start: 20180205
  3. INFLECTRA [Suspect]
     Active Substance: INFLIXIMAB-DYYB
     Dosage: 500 MG CYCLIC (EVERY 7 WEEKS)
     Route: 042
     Dates: start: 20180205
  4. INFLECTRA [Suspect]
     Active Substance: INFLIXIMAB-DYYB
     Dosage: 500 MG CYCLIC (EVERY 7 WEEKS)
     Route: 042
     Dates: start: 20180410, end: 20180410
  5. INFLECTRA [Suspect]
     Active Substance: INFLIXIMAB-DYYB
     Dosage: 500 MG CYCLIC (WEEK 0, 2, 6, THEN MAINTENANCE EVERY 6 WEEKS)
     Route: 042
     Dates: start: 20180815, end: 20180926
  6. INFLECTRA [Suspect]
     Active Substance: INFLIXIMAB-DYYB
     Indication: CROHN^S DISEASE
     Dosage: 500 MG, CYCLIC (EVERY 7 WEEKS)
     Route: 042
  7. INFLECTRA [Suspect]
     Active Substance: INFLIXIMAB-DYYB
     Dosage: 500 MG CYCLIC (WEEK 0, 2, 6, THEN MAINTENANCE EVERY 6 WEEKS)
     Route: 042
     Dates: start: 20180605
  8. INFLECTRA [Suspect]
     Active Substance: INFLIXIMAB-DYYB
     Dosage: 500 MG CYCLIC (WEEK 0, 2, 6, THEN MAINTENANCE EVERY 6 WEEKS)
     Route: 042
     Dates: start: 20181106
  9. INFLECTRA [Suspect]
     Active Substance: INFLIXIMAB-DYYB
     Dosage: 500 MG CYCLIC (WEEK 0, 2, 6, THEN MAINTENANCE EVERY 6 WEEKS)
     Route: 042
     Dates: start: 20180522
  10. INFLECTRA [Suspect]
     Active Substance: INFLIXIMAB-DYYB
     Dosage: 455 MG, CYCLIC (EVERY 6 WEEKS)
     Route: 042
     Dates: start: 20171227

REACTIONS (12)
  - Intestinal obstruction [Unknown]
  - Drug effect incomplete [Unknown]
  - Off label use [Unknown]
  - Infusion site extravasation [Unknown]
  - Constipation [Recovering/Resolving]
  - Loss of personal independence in daily activities [Unknown]
  - Condition aggravated [Recovered/Resolved]
  - Abdominal distension [Recovering/Resolving]
  - Blood pressure fluctuation [Unknown]
  - Fistula [Recovering/Resolving]
  - Incorrect product administration duration [Unknown]
  - Inguinal hernia [Unknown]

NARRATIVE: CASE EVENT DATE: 20170626
